FAERS Safety Report 9297607 (Version 1)
Quarter: 2013Q2

REPORT INFORMATION
  Report Type: Spontaneous
  Country: GB (occurrence: GB)
  Receive Date: 20130520
  Receipt Date: 20130520
  Transmission Date: 20140414
  Serious: Yes (Other)
  Sender: FDA-Public Use
  Company Number: GB-JNJFOC-20130505613

PATIENT
  Age: 76 Year
  Sex: Female
  Weight: 114 kg

DRUGS (10)
  1. XARELTO [Suspect]
     Indication: CEREBROVASCULAR ACCIDENT PROPHYLAXIS
     Route: 048
     Dates: start: 20130401, end: 20130416
  2. XARELTO [Suspect]
     Indication: ATRIAL FIBRILLATION
     Route: 048
     Dates: start: 20130401, end: 20130416
  3. SIMVASTATIN [Concomitant]
     Route: 065
  4. DOXAZOSIN [Concomitant]
     Route: 065
  5. VERAPAMIL [Concomitant]
     Route: 065
  6. PIOGLITAZONE [Concomitant]
     Route: 065
  7. QVAR [Concomitant]
     Route: 065
  8. DIGOXIN [Concomitant]
     Route: 065
  9. BENDROFLUMETHIAZIDE [Concomitant]
     Route: 065
  10. METFORMIN [Concomitant]
     Route: 065

REACTIONS (1)
  - Decreased appetite [Unknown]
